FAERS Safety Report 5651762-7 (Version None)
Quarter: 2008Q1

REPORT INFORMATION
  Report Type: 
  Country: None (occurrence: None)
  Receive Date: 20080305
  Receipt Date: 20080225
  Transmission Date: 20080703
  Serious: Yes (Other)
  Sender: FDA-Public Use
  Company Number: DE-PFIZER INC-2008018386

PATIENT
  Age: 54 Year
  Sex: Female

DRUGS (1)
  1. AROMASIN [Suspect]
     Indication: BREAST CANCER METASTATIC
     Route: 048

REACTIONS (3)
  - BRONCHOSPASM [None]
  - COUGH [None]
  - DYSPNOEA EXERTIONAL [None]
